FAERS Safety Report 5637507-5 (Version None)
Quarter: 2008Q1

REPORT INFORMATION
  Report Type: 
  Country: None (occurrence: None)
  Receive Date: 20080225
  Receipt Date: 20080214
  Transmission Date: 20080703
  Serious: Yes (Death, Other)
  Sender: FDA-Public Use
  Company Number: PFIZER INC-2008014527

PATIENT
  Sex: Female

DRUGS (1)
  1. SUTENT [Suspect]
     Indication: METASTATIC RENAL CELL CARCINOMA

REACTIONS (5)
  - DISEASE PROGRESSION [None]
  - HYPOGLYCAEMIC COMA [None]
  - MALAISE [None]
  - METASTATIC RENAL CELL CARCINOMA [None]
  - PANCYTOPENIA [None]
